FAERS Safety Report 14608714 (Version 2)
Quarter: 2018Q1

REPORT INFORMATION
  Report Type: Spontaneous
  Country: JP (occurrence: JP)
  Receive Date: 20180307
  Receipt Date: 20180308
  Transmission Date: 20180509
  Serious: Yes (Other)
  Sender: FDA-Public Use
  Company Number: JP-PFIZER INC-2017530807

PATIENT
  Age: 39 Year
  Sex: Female
  Weight: 69 kg

DRUGS (28)
  1. CYMBALTA [Concomitant]
     Active Substance: DULOXETINE HYDROCHLORIDE
     Indication: HYPOAESTHESIA
     Dosage: 20 MG, DAILY
     Dates: start: 20171119
  2. CELECOX [Concomitant]
     Active Substance: CELECOXIB
     Dosage: 400 MG, DAILY
     Dates: start: 20171127
  3. MAGNESIUM OXIDE. [Concomitant]
     Active Substance: MAGNESIUM OXIDE
  4. FLUNITRAZEPAM [Concomitant]
     Active Substance: FLUNITRAZEPAM
  5. SENNOSIDE /00571901/ [Concomitant]
     Active Substance: SENNOSIDES A AND B
  6. NORSPAN [Concomitant]
     Active Substance: BUPRENORPHINE
     Dosage: 10 MG, WEEKLY
     Route: 062
     Dates: start: 20171126, end: 20171206
  7. OXYCONTIN [Concomitant]
     Active Substance: OXYCODONE HYDROCHLORIDE
     Dosage: 10 MG, DAILY
  8. OXYCONTIN [Concomitant]
     Active Substance: OXYCODONE HYDROCHLORIDE
     Dosage: 20 MG, DAILY
     Dates: start: 20171214
  9. CELECOX [Concomitant]
     Active Substance: CELECOXIB
     Indication: PROCEDURAL PAIN
     Dosage: 200 MG, DAILY
     Dates: start: 20171116
  10. RILIAJIN [Concomitant]
     Indication: INFECTION PROPHYLAXIS
     Dosage: 4 G, DAILY
     Route: 042
     Dates: start: 20171116
  11. LYRICA [Suspect]
     Active Substance: PREGABALIN
     Indication: NEURALGIA
     Dosage: 25 MG, 2X/DAY
     Route: 048
     Dates: start: 20171122, end: 20171129
  12. LYRICA [Suspect]
     Active Substance: PREGABALIN
     Dosage: 75 MG, 1X/DAY
     Route: 048
     Dates: start: 20171207
  13. METHYCOBAL [Concomitant]
     Active Substance: METHYLCOBALAMIN
     Indication: HYPOAESTHESIA
     Dosage: 1500 UG, DAILY
  14. CALONAL [Concomitant]
     Active Substance: ACETAMINOPHEN
     Dosage: 1600 MG, DAILY
     Dates: start: 20171122
  15. LYRICA [Suspect]
     Active Substance: PREGABALIN
     Dosage: 100 MG, DAILY (25 MG IN THE MORNING AND 75 MG BEFORE BEDTIME)
     Route: 048
     Dates: start: 20171130, end: 20171205
  16. CYMBALTA [Concomitant]
     Active Substance: DULOXETINE HYDROCHLORIDE
     Dosage: 60 MG, DAILY
     Dates: start: 20171202
  17. HERBAL NOS [Concomitant]
     Active Substance: HERBALS
     Indication: MUSCLE SPASMS
     Dosage: 2.5 G, 3X/DAY
     Dates: start: 20171124
  18. LYRICA [Suspect]
     Active Substance: PREGABALIN
     Dosage: 25 MG, DAILY
     Route: 048
     Dates: start: 20171209, end: 20171210
  19. ANTEBATE [Concomitant]
     Active Substance: BETAMETHASONE DIPROPIONATE
  20. LYRICA [Suspect]
     Active Substance: PREGABALIN
     Dosage: 75 MG, 2X/DAY
     Route: 048
     Dates: start: 20171206
  21. LYRICA [Suspect]
     Active Substance: PREGABALIN
     Dosage: 25 MG, 2X/DAY
     Route: 048
     Dates: start: 20171208
  22. CYMBALTA [Concomitant]
     Active Substance: DULOXETINE HYDROCHLORIDE
     Dosage: 40 MG, DAILY
     Dates: start: 20171125
  23. EURAX H [Concomitant]
  24. RILIAJIN [Concomitant]
     Dosage: 2 G, DAILY
     Route: 042
     Dates: start: 20171118, end: 20171212
  25. NEXIUM [Concomitant]
     Active Substance: ESOMEPRAZOLE MAGNESIUM
     Dosage: 20 MG, DAILY
     Dates: start: 20171122
  26. RILIAJIN [Concomitant]
     Dosage: 3 G, DAILY
     Route: 042
     Dates: start: 20171117
  27. NORSPAN [Concomitant]
     Active Substance: BUPRENORPHINE
     Dosage: 5 MG, WEEKLY
     Route: 062
     Dates: start: 20171116
  28. POPSCAINE [Concomitant]
     Active Substance: LEVOBUPIVACAINE HYDROCHLORIDE
     Indication: PAIN MANAGEMENT
     Dosage: 120 MG, DAILY
     Route: 008
     Dates: start: 20171116, end: 20171126

REACTIONS (1)
  - Neutrophil count decreased [Recovered/Resolved]

NARRATIVE: CASE EVENT DATE: 20171207
